FAERS Safety Report 7490213-7 (Version None)
Quarter: 2011Q2

REPORT INFORMATION
  Report Type: 
  Country: None (occurrence: None)
  Receive Date: 20110512
  Receipt Date: 20110124
  Transmission Date: 20111010
  Serious: Yes (Life-Threatening, Hospitalization)
  Sender: FDA-Public Use
  Company Number: PHBS2003JP01063

PATIENT
  Age: 29 Year
  Sex: Female
  Weight: 50 kg

DRUGS (10)
  1. FAMOTIDINE [Suspect]
     Dates: end: 20020101
  2. RIZE (CLOTIAZEPAM) [Concomitant]
  3. TIZANIDINE HYDROCHLORIDE [Suspect]
     Indication: MYOTONIA
     Dates: start: 20020901, end: 20020901
  4. SELBEX (TEPRENONE) [Concomitant]
  5. PREDNISOLONE [Concomitant]
  6. TEGRETOL [Suspect]
     Indication: MUSCLE SPASMS
     Dosage: 200 MG, BID ORAL; 200 MG, TID; ORAL; 200 MG, QID; ORAL; 200 MG, TID;
     Route: 048
     Dates: start: 20021213, end: 20030109
  7. TEGRETOL [Suspect]
     Indication: MUSCLE SPASMS
     Dosage: 200 MG, BID ORAL; 200 MG, TID; ORAL; 200 MG, QID; ORAL; 200 MG, TID;
     Route: 048
     Dates: start: 20020909, end: 20020912
  8. TEGRETOL [Suspect]
     Indication: MUSCLE SPASMS
     Dosage: 200 MG, BID ORAL; 200 MG, TID; ORAL; 200 MG, QID; ORAL; 200 MG, TID;
     Route: 048
     Dates: start: 20020913, end: 20020930
  9. TEGRETOL [Suspect]
     Indication: MUSCLE SPASMS
     Dosage: 200 MG, BID ORAL; 200 MG, TID; ORAL; 200 MG, QID; ORAL; 200 MG, TID;
     Route: 048
     Dates: start: 20021101, end: 20021212
  10. TEGRETOL [Suspect]
     Indication: MUSCLE SPASMS
     Dosage: 200 MG, BID ORAL; 200 MG, TID; ORAL; 200 MG, QID; ORAL; 200 MG, TID;
     Route: 048
     Dates: start: 20020815, end: 20020908

REACTIONS (20)
  - HYPOGAMMAGLOBULINAEMIA [None]
  - SKIN EXFOLIATION [None]
  - HEPATIC FUNCTION ABNORMAL [None]
  - ASPARTATE AMINOTRANSFERASE INCREASED [None]
  - ALANINE AMINOTRANSFERASE INCREASED [None]
  - HYPERREFLEXIA [None]
  - MYOTONIA [None]
  - BLOOD ALKALINE PHOSPHATASE INCREASED [None]
  - UPPER RESPIRATORY TRACT INFECTION [None]
  - B-LYMPHOCYTE ABNORMALITIES [None]
  - B-LYMPHOCYTE COUNT DECREASED [None]
  - EOSINOPHILIA [None]
  - NEUROMYELITIS OPTICA [None]
  - PRURITUS [None]
  - RASH GENERALISED [None]
  - GENERALISED ERYTHEMA [None]
  - EXTENSOR PLANTAR RESPONSE [None]
  - MUSCLE SPASMS [None]
  - GAMMA-GLUTAMYLTRANSFERASE INCREASED [None]
  - PNEUMONIA [None]
